FAERS Safety Report 5340008-5 (Version None)
Quarter: 2007Q2

REPORT INFORMATION
  Report Type: 
  Country: None (occurrence: None)
  Receive Date: 20070405
  Receipt Date: 20061127
  Transmission Date: 20071010
  Serious: No
  Sender: FDA-Public Use
  Company Number: US200610004433

PATIENT
  Age: 37 Year
  Sex: Female

DRUGS (2)
  1. CYMBALTA [Suspect]
     Indication: DEPRESSION
     Dates: start: 20060901, end: 20061116
  2. PROZAC [Suspect]
     Indication: DEPRESSION
     Dosage: 40 MG, ORAL
     Route: 048
     Dates: start: 19910101, end: 20060801

REACTIONS (9)
  - ABDOMINAL PAIN [None]
  - BACK PAIN [None]
  - DIZZINESS [None]
  - FUNGAL INFECTION [None]
  - GAIT DISTURBANCE [None]
  - PAIN [None]
  - PAIN IN EXTREMITY [None]
  - SWELLING [None]
  - WEIGHT INCREASED [None]
